FAERS Safety Report 9918092 (Version 1)
Quarter: 2014Q1

REPORT INFORMATION
  Report Type: Spontaneous
  Country: US (occurrence: US)
  Receive Date: 20140223
  Receipt Date: 20140223
  Transmission Date: 20141002
  Serious: No
  Sender: FDA-Public Use
  Company Number: US-ALLERGAN-1319876US

PATIENT
  Sex: Female

DRUGS (1)
  1. TAZORAC CREAM 0.1% [Suspect]
     Indication: ACNE
     Dosage: UNK
     Route: 061
     Dates: start: 201312

REACTIONS (1)
  - Acne [Unknown]
